FAERS Safety Report 21024052 (Version 1)
Quarter: 2022Q2

REPORT INFORMATION
  Report Type: Spontaneous
  Country: CA (occurrence: CA)
  Receive Date: 20220629
  Receipt Date: 20220629
  Transmission Date: 20220721
  Serious: Yes (Hospitalization)
  Sender: FDA-Public Use
  Company Number: CA-NOVOPROD-931885

PATIENT
  Age: 14 Year
  Sex: Male
  Weight: 45.9 kg

DRUGS (1)
  1. ESPEROCT [Suspect]
     Active Substance: ANTIHEMOPHILIC FACTOR, HUMAN RECOMBINANT
     Indication: Factor VIII deficiency
     Dosage: 3000 IU, TIW ((MONDAY, WEDNESDAY, FRIDAY))
     Route: 065
     Dates: start: 20220603

REACTIONS (2)
  - Asthenia [Unknown]
  - Product dose omission issue [Unknown]

NARRATIVE: CASE EVENT DATE: 20220101
